FAERS Safety Report 5204449-9 (Version None)
Quarter: 2007Q1

REPORT INFORMATION
  Report Type: 
  Country: None (occurrence: None)
  Receive Date: 20070110
  Receipt Date: 20060329
  Transmission Date: 20070707
  Serious: No
  Sender: FDA-Public Use
  Company Number: US-BRISTOL-MYERS SQUIBB COMPANY-13331772

PATIENT
  Sex: Female

DRUGS (4)
  1. ABILIFY [Suspect]
     Route: 048
  2. LAMICTAL [Concomitant]
  3. LEXAPRO [Concomitant]
  4. HYDROCODONE BITARTRATE [Concomitant]

REACTIONS (1)
  - DRY MOUTH [None]
